FAERS Safety Report 9568599 (Version 2)
Quarter: 2014Q1

REPORT INFORMATION
  Report Type: Spontaneous
  Country: US (occurrence: US)
  Receive Date: 20130930
  Receipt Date: 20140228
  Transmission Date: 20141002
  Serious: No
  Sender: FDA-Public Use
  Company Number: US-AMGEN-USASP2013061833

PATIENT
  Age: 27 Year
  Sex: Female
  Weight: 86 kg

DRUGS (8)
  1. ENBREL [Suspect]
     Indication: PSORIASIS
     Dosage: 50 MG, QWK
     Route: 058
     Dates: start: 20130723
  2. FLUTICASONE [Concomitant]
     Dosage: 50 MUG, UNK
  3. LAMICTAL [Concomitant]
     Dosage: 100 MG, UNK
  4. SPIRONOLACTON [Concomitant]
     Dosage: 50 MG, UNK
  5. METHOTREXATE [Concomitant]
     Dosage: 50 MG/2ML, UNK
  6. YAZ [Concomitant]
     Dosage: 3-0.02 MG, UNK
  7. FOLIC ACID [Concomitant]
     Dosage: UNK
  8. DROSPIRENONA+ETINILESTRADIOL [Concomitant]
     Dosage: 3-0.03 MG, UNK

REACTIONS (1)
  - Nasopharyngitis [Unknown]
